APPROVED DRUG PRODUCT: TESTOSTERONE CYPIONATE
Active Ingredient: TESTOSTERONE CYPIONATE
Strength: 100MG/ML
Dosage Form/Route: INJECTABLE;INJECTION
Application: A090387 | Product #001 | TE Code: AO
Applicant: HIKMA PHARMACEUTICALS USA INC
Approved: Jul 15, 2010 | RLD: No | RS: No | Type: RX